FAERS Safety Report 7077365-8 (Version None)
Quarter: 2010Q4

REPORT INFORMATION
  Report Type: 
  Country: None (occurrence: None)
  Receive Date: 20101029
  Receipt Date: 20101029
  Transmission Date: 20110411
  Serious: Yes (Other)
  Sender: FDA-Public Use
  Company Number: None

PATIENT
  Age: 9 Month
  Sex: Female
  Weight: 8.1647 kg

DRUGS (1)
  1. HYLANDS TEETHING TABLETS ???? HYLAND'S INC [Suspect]
     Indication: TEETHING
     Dosage: 2-3 PILLS UP TO 4 TIMES PO (MORNING N NIGHT)
     Route: 048
     Dates: start: 20101009, end: 20101022

REACTIONS (4)
  - CONSTIPATION [None]
  - INSOMNIA [None]
  - IRRITABILITY [None]
  - TREMOR [None]
